FAERS Safety Report 24528049 (Version 1)
Quarter: 2024Q4

REPORT INFORMATION
  Report Type: Spontaneous
  Country: US (occurrence: US)
  Receive Date: 20241021
  Receipt Date: 20241021
  Transmission Date: 20250114
  Serious: Yes (Hospitalization, Other)
  Sender: ZYDUS PHARM
  Company Number: US-CADILA HEALTHCARE LIMITED-US-ZYDUS-113555

PATIENT

DRUGS (5)
  1. AMLODIPINE [Suspect]
     Active Substance: AMLODIPINE BESYLATE
     Indication: Product used for unknown indication
     Dosage: 10 MILLIGRAM OF 87 PILLS
     Route: 065
  2. NOREPINEPHRINE [Concomitant]
     Active Substance: NOREPINEPHRINE\NOREPINEPHRINE BITARTRATE
     Indication: Hypotension
  3. VASOPRESSIN [Concomitant]
     Active Substance: VASOPRESSIN
     Indication: Hypotension
     Dosage: UNK
     Route: 065
  4. CALCIUM GLUCONATE [Concomitant]
     Active Substance: CALCIUM GLUCONATE
     Indication: Overdose
     Dosage: UNK
     Route: 065
  5. CHARCOAL [Concomitant]
     Active Substance: ACTIVATED CHARCOAL
     Indication: Overdose
     Dosage: 50 GRAM
     Route: 065

REACTIONS (3)
  - Non-cardiogenic pulmonary oedema [Recovered/Resolved]
  - Blood insulin decreased [Recovered/Resolved]
  - Overdose [Unknown]
